FAERS Safety Report 5110535-4 (Version None)
Quarter: 2006Q3

REPORT INFORMATION
  Report Type: 
  Country: None (occurrence: None)
  Receive Date: 20060913
  Receipt Date: 20050915
  Transmission Date: 20061208
  Serious: Yes (Hospitalization)
  Sender: FDA-Public Use
  Company Number: 200511746BBE

PATIENT
  Sex: Female

DRUGS (4)
  1. GAMUNEX [Suspect]
     Dosage: SEE IMAGE
     Route: 042
     Dates: start: 20050713
  2. GAMUNEX [Suspect]
     Dosage: SEE IMAGE
     Route: 042
     Dates: start: 20050810
  3. GAMUNEX [Suspect]
     Dosage: SEE IMAGE
     Route: 042
     Dates: start: 20050907
  4. DOXYCYCLINE [Concomitant]

REACTIONS (10)
  - ABDOMINAL DISCOMFORT [None]
  - ARTHRALGIA [None]
  - FATIGUE [None]
  - HEADACHE [None]
  - HISTOPLASMOSIS [None]
  - MALAISE [None]
  - OEDEMA [None]
  - PYREXIA [None]
  - RASH MACULAR [None]
  - ROCKY MOUNTAIN SPOTTED FEVER [None]
